FAERS Safety Report 16956891 (Version 1)
Quarter: 2019Q4

REPORT INFORMATION
  Report Type: Spontaneous
  Country: US (occurrence: US)
  Receive Date: 20191023
  Receipt Date: 20191023
  Transmission Date: 20200122
  Serious: Yes (Life-Threatening, Disabling, Other)
  Sender: FDA-Public Use
  Company Number: None

PATIENT
  Age: 39 Year
  Sex: Female
  Weight: 67.5 kg

DRUGS (5)
  1. PANTOPRAZOLE [Concomitant]
     Active Substance: PANTOPRAZOLE
  2. AMOXICILLIN. [Concomitant]
     Active Substance: AMOXICILLIN
  3. XELJANZ [Suspect]
     Active Substance: TOFACITINIB CITRATE
     Indication: RHEUMATOID ARTHRITIS
     Dosage: ?          QUANTITY:1 TABLET(S);?
     Route: 048
     Dates: start: 20190201, end: 20191018
  4. LEVAQUIN [Concomitant]
     Active Substance: LEVOFLOXACIN
  5. ARMODIFINIL [Concomitant]

REACTIONS (9)
  - Anxiety [None]
  - Mood altered [None]
  - Fatigue [None]
  - Sensitive skin [None]
  - Pain [None]
  - Gastric disorder [None]
  - Photosensitivity reaction [None]
  - Hyperacusis [None]
  - Fibromyalgia [None]

NARRATIVE: CASE EVENT DATE: 20191002
